FAERS Safety Report 6390173-6 (Version None)
Quarter: 2009Q4

REPORT INFORMATION
  Report Type: 
  Country: None (occurrence: None)
  Receive Date: 20091003
  Receipt Date: 20090915
  Transmission Date: 20100525
  Serious: Yes (Other)
  Sender: FDA-Public Use
  Company Number: 2280705-2009-00014

PATIENT
  Age: 58 Year
  Sex: Female

DRUGS (2)
  1. MENTADENT? ADVANCED WHITENING TOOTHPASTE [Suspect]
     Indication: DENTAL CARIES
     Dosage: USED TO BRUSH TEETH
  2. MENTADENT? ADVANCED WHITENING TOOTHPASTE [Suspect]
     Indication: DENTAL DISORDER PROPHYLAXIS
     Dosage: USED TO BRUSH TEETH

REACTIONS (4)
  - DYSPNOEA [None]
  - OEDEMA MOUTH [None]
  - ORAL PAIN [None]
  - SWELLING FACE [None]
